FAERS Safety Report 25498575 (Version 1)
Quarter: 2025Q2

REPORT INFORMATION
  Report Type: Spontaneous
  Country: US (occurrence: None)
  Receive Date: 20250630
  Receipt Date: 20250630
  Transmission Date: 20250717
  Serious: Yes (Death)
  Sender: FDA-CTU
  Company Number: None

PATIENT
  Age: 64 Year
  Sex: Male

DRUGS (1)
  1. CAPECITABINE [Suspect]
     Active Substance: CAPECITABINE
     Indication: Laryngeal cancer
     Dosage: OTHER QUANTITY : 1000/1500 MG;?FREQUENCY : TWICE A DAY;?

REACTIONS (1)
  - Death [None]

NARRATIVE: CASE EVENT DATE: 20250625
